FAERS Safety Report 6324105-3 (Version None)
Quarter: 2009Q3

REPORT INFORMATION
  Report Type: 
  Country: None (occurrence: None)
  Receive Date: 20090824
  Receipt Date: 20090421
  Transmission Date: 20100115
  Serious: No
  Sender: FDA-Public Use
  Company Number: US-ABBOTT-09P-163-0569199-00

PATIENT
  Sex: Female
  Weight: 97.61 kg

DRUGS (12)
  1. NIASPAN [Suspect]
     Indication: BLOOD TRIGLYCERIDES INCREASED
     Route: 048
     Dates: start: 20090417
  2. LOPID [Concomitant]
     Indication: BLOOD TRIGLYCERIDES INCREASED
  3. HYDRALAZINE HCL [Concomitant]
     Indication: HYPERTENSION
  4. GLUCOTROL [Concomitant]
     Indication: DIABETES MELLITUS
  5. COREG [Concomitant]
     Indication: CARDIAC FAILURE CONGESTIVE
  6. BYETTA [Concomitant]
     Indication: DIABETES MELLITUS
  7. FOSINIPRIL [Concomitant]
     Indication: FLUID RETENTION
  8. AVAPRO [Concomitant]
     Indication: CARDIAC FAILURE CONGESTIVE
  9. LANTUS [Concomitant]
     Indication: DIABETES MELLITUS
     Dosage: 10-20 UNITS PER SLIDING SCALE
  10. COLCHICINE [Concomitant]
     Indication: GOUT
  11. DARVOCET [Concomitant]
     Indication: ARTHRITIS
  12. ZADITOR [Concomitant]
     Indication: RETINAL DETACHMENT

REACTIONS (1)
  - INSOMNIA [None]
